FAERS Safety Report 4970043-8 (Version None)
Quarter: 2006Q2

REPORT INFORMATION
  Report Type: 
  Country: None (occurrence: None)
  Receive Date: 20060406
  Receipt Date: 20060328
  Transmission Date: 20061013
  Serious: Yes (Death)
  Sender: FDA-Public Use
  Company Number: 220272

PATIENT
  Age: 57 Year
  Sex: Male
  Weight: 77.3 kg

DRUGS (15)
  1. EFALIZUMAB (EFALIZUMAB) PWDR + SOLVENT, INJECTION SOLN, 125MG [Suspect]
     Indication: PSORIASIS
     Dosage: SEE IMAGE
     Route: 058
     Dates: start: 20031208, end: 20040106
  2. EFALIZUMAB (EFALIZUMAB) PWDR + SOLVENT, INJECTION SOLN, 125MG [Suspect]
     Indication: PSORIASIS
     Dosage: SEE IMAGE
     Route: 058
     Dates: end: 20051129
  3. METOPROLOL TARTRATE [Concomitant]
  4. INSULIN NPH (INSULIN (SUSPENSION), ISOPHANE) [Concomitant]
  5. ASPIRIN [Concomitant]
  6. BICITRA (CITRIC ACID, SODIUM CITRATE) [Concomitant]
  7. VICODIN [Concomitant]
  8. NORVASC [Concomitant]
  9. COLACE (DOCUSATE SODIUM) [Concomitant]
  10. FERROUS SULFATE TAB [Concomitant]
  11. FLUOCINONIDE OINTMENT (FLUOCINONIDE) [Concomitant]
  12. RIFAMPIN [Concomitant]
  13. COZAAR [Concomitant]
  14. FLOMAX [Concomitant]
  15. PREVACID [Concomitant]

REACTIONS (14)
  - ABSCESS NECK [None]
  - ANAEMIA [None]
  - BACTERAEMIA [None]
  - BLOOD PRESSURE SYSTOLIC INCREASED [None]
  - CARDIAC ARREST [None]
  - DIABETIC KETOACIDOSIS [None]
  - DIARRHOEA [None]
  - GENERALISED OEDEMA [None]
  - NEPHROTIC SYNDROME [None]
  - PAIN [None]
  - PNEUMONIA BACTERIAL [None]
  - RESPIRATORY FAILURE [None]
  - SUBCUTANEOUS ABSCESS [None]
  - WOUND INFECTION STAPHYLOCOCCAL [None]
